FAERS Safety Report 5652209-7 (Version None)
Quarter: 2008Q1

REPORT INFORMATION
  Report Type: 
  Country: None (occurrence: None)
  Receive Date: 20080304
  Receipt Date: 20080221
  Transmission Date: 20080703
  Serious: Yes (Other)
  Sender: FDA-Public Use
  Company Number: 100#03#2008-01028

PATIENT
  Age: 71 Year
  Sex: Female

DRUGS (2)
  1. ALENDRONIC ACID [Suspect]
     Indication: DRUG USE FOR UNKNOWN INDICATION
     Dosage: 70 MG
     Route: 048
     Dates: start: 20070802
  2. CALCICHEW (CALCIUM CARBONATE) [Concomitant]

REACTIONS (2)
  - LIP SWELLING [None]
  - SWOLLEN TONGUE [None]
